FAERS Safety Report 7108629-7 (Version None)
Quarter: 2010Q4

REPORT INFORMATION
  Report Type: 
  Country: None (occurrence: None)
  Receive Date: 20101117
  Receipt Date: 20101110
  Transmission Date: 20110411
  Serious: Yes (Other)
  Sender: FDA-Public Use
  Company Number: DE-ROCHE-727088

PATIENT
  Sex: Female

DRUGS (9)
  1. KEVATRIL [Suspect]
     Route: 048
     Dates: start: 20100727, end: 20100816
  2. KEVATRIL [Suspect]
     Route: 048
  3. AMITRIPTYLINE HYDROCHLORIDE [Concomitant]
     Route: 048
  4. DURAGESIC-100 [Concomitant]
  5. BISOPROLOL FUMARATE [Concomitant]
     Route: 048
  6. PARACETAMOL [Concomitant]
     Route: 048
  7. SIMVASTATIN [Concomitant]
     Route: 048
  8. GEMZAR [Concomitant]
  9. CISPLATIN [Concomitant]

REACTIONS (4)
  - ANXIETY [None]
  - CHEST DISCOMFORT [None]
  - MYOCLONUS [None]
  - RESTLESSNESS [None]
